FAERS Safety Report 12969545 (Version 4)
Quarter: 2017Q1

REPORT INFORMATION
  Report Type: Report from Study
  Country: IT (occurrence: JP)
  Receive Date: 20161123
  Receipt Date: 20170331
  Transmission Date: 20170428
  Serious: Yes (Death, Other)
  Sender: FDA-Public Use
  Company Number: IT-SIGMA-TAU US-2016STPI000935

PATIENT
  Age: 78 Year
  Sex: Female

DRUGS (10)
  1. CARNITOR [Suspect]
     Active Substance: LEVOCARNITINE
     Indication: CARNITINE DEFICIENCY
     Dosage: 1500 MG, QD
     Route: 048
     Dates: start: 20160219, end: 20160329
  2. SPIRONOLACTONE. [Suspect]
     Active Substance: SPIRONOLACTONE
  3. NEXIUM [Concomitant]
     Active Substance: ESOMEPRAZOLE MAGNESIUM
  4. SAMSCA [Suspect]
     Active Substance: TOLVAPTAN
     Dosage: 7.5 MG, QD
  5. AZOSEMIDE [Suspect]
     Active Substance: AZOSEMIDE
  6. THYRADIN S [Concomitant]
     Active Substance: LEVOTHYROXINE SODIUM
  7. LIVACT                             /00847901/ [Concomitant]
     Active Substance: ISOLEUCINE\LEUCINE\VALINE
  8. URSODEOXYCHOLIC ACID [Concomitant]
     Active Substance: URSODIOL
     Indication: PRODUCT USED FOR UNKNOWN INDICATION
  9. TRICHLORMETHIAZIDE [Suspect]
     Active Substance: TRICHLORMETHIAZIDE
  10. HEPAN ED [Concomitant]
     Active Substance: AMINO ACIDS\VITAMINS

REACTIONS (9)
  - Enterocolitis [Recovered/Resolved]
  - Subdural haematoma [Recovering/Resolving]
  - Fall [Recovering/Resolving]
  - Hepatic cirrhosis [Fatal]
  - Neurogenic bladder [Recovering/Resolving]
  - Blood urea increased [Not Recovered/Not Resolved]
  - Contusion [Recovering/Resolving]
  - Platelet count decreased [Not Recovered/Not Resolved]
  - Hyponatraemia [Recovered/Resolved]

NARRATIVE: CASE EVENT DATE: 20160223
